FAERS Safety Report 9493186 (Version 3)
Quarter: 2013Q4

REPORT INFORMATION
  Report Type: Spontaneous
  Country: DE (occurrence: DE)
  Receive Date: 20130902
  Receipt Date: 20131122
  Transmission Date: 20140711
  Serious: Yes (Hospitalization, Other)
  Sender: FDA-Public Use
  Company Number: DE-BRISTOL-MYERS SQUIBB COMPANY-19201615

PATIENT
  Age: 77 Year
  Sex: Female
  Weight: 78 kg

DRUGS (5)
  1. ELIQUIS [Suspect]
     Indication: ATRIAL FIBRILLATION
     Dosage: 5MG TWICE A DAY?CUMULATIVE DOSE:290 MG
     Route: 048
     Dates: start: 20130524, end: 20130621
  2. LAMICTAL [Suspect]
     Indication: EPILEPSY
     Dosage: 23MAY13 - 15JUN13?CUMUL DOSE:2400MG?100MG 2/DAY:16-17JUN13:2DAYS?CUMUL DOSE:400MG
     Route: 048
     Dates: start: 20130523, end: 20130617
  3. NEXIUM [Concomitant]
     Route: 048
     Dates: start: 20090409
  4. BELOC-ZOK [Concomitant]
     Indication: ATRIAL FIBRILLATION
     Route: 048
     Dates: start: 20130409
  5. DIGIMERCK [Concomitant]
     Indication: ATRIAL FIBRILLATION
     Route: 048
     Dates: start: 20130502

REACTIONS (2)
  - Drug eruption [Recovered/Resolved]
  - Liver function test abnormal [Recovering/Resolving]
